FAERS Safety Report 20636109 (Version 1)
Quarter: 2022Q1

REPORT INFORMATION
  Report Type: Spontaneous
  Country: US (occurrence: None)
  Receive Date: 20220324
  Receipt Date: 20220324
  Transmission Date: 20220423
  Serious: No
  Sender: FDA-Public Use
  Company Number: None

PATIENT
  Age: 42 Year
  Sex: Male

DRUGS (1)
  1. HUMIRA [Suspect]
     Active Substance: ADALIMUMAB
     Indication: Rheumatoid arthritis
     Dosage: 40MG WEEKLY?
     Route: 058
     Dates: start: 202111

REACTIONS (3)
  - Device use issue [None]
  - Product dose omission issue [None]
  - Wrong technique in product usage process [None]

NARRATIVE: CASE EVENT DATE: 20211101
